FAERS Safety Report 12739046 (Version 1)
Quarter: 2016Q3

REPORT INFORMATION
  Report Type: Spontaneous
  Country: US (occurrence: US)
  Receive Date: 20160913
  Receipt Date: 20160913
  Transmission Date: 20161109
  Serious: Yes (Death, Hospitalization)
  Sender: FDA-Public Use
  Company Number: US-PFIZER INC-2016424962

PATIENT
  Age: 76 Year
  Sex: Male
  Weight: 122 kg

DRUGS (13)
  1. CELEXA [Concomitant]
     Active Substance: CITALOPRAM HYDROBROMIDE
     Dosage: 10 MG, 1X/DAY
     Route: 048
     Dates: start: 200907
  2. LASIX [Concomitant]
     Active Substance: FUROSEMIDE
     Indication: FLUID RETENTION
     Dosage: 40 MG, 1X/DAY
     Route: 048
     Dates: end: 20160815
  3. PRAVASTATIN. [Concomitant]
     Active Substance: PRAVASTATIN
     Dosage: 40 MG, 1X/DAY
     Route: 048
     Dates: start: 2009
  4. NEORAL [Concomitant]
     Active Substance: CYCLOSPORINE
     Indication: PROPHYLAXIS AGAINST TRANSPLANT REJECTION
     Dosage: 75MG IN MORNING AND 75MG IN EVENING CAPSULE BY MOUTH
     Route: 048
     Dates: start: 200907, end: 20160902
  5. METOLAZONE. [Concomitant]
     Active Substance: METOLAZONE
     Dosage: 7.5 MG, 1X/DAY
     Route: 048
     Dates: start: 2009
  6. ASPIRIN. [Concomitant]
     Active Substance: ASPIRIN
     Indication: CARDIAC DISORDER
     Dosage: 81 MG PILL ONCE A DAY BY MOUTH
     Route: 048
     Dates: start: 2009, end: 20160902
  7. CENTRUM SILVER [Concomitant]
     Active Substance: MINERALS\VITAMINS
     Indication: SUPPLEMENTATION THERAPY
     Dosage: 1 TABLET ONCE A DAY BY MOUTH
     Route: 048
     Dates: end: 20160815
  8. COREG [Concomitant]
     Active Substance: CARVEDILOL
     Dosage: 6.5 MG, 2X/DAY
     Route: 048
     Dates: start: 2009
  9. COUMADIN [Concomitant]
     Active Substance: WARFARIN SODIUM
     Indication: BLOOD VISCOSITY INCREASED
     Dates: start: 2005, end: 20160902
  10. MILRINONE [Concomitant]
     Active Substance: MILRINONE
     Indication: CARDIAC DISORDER
     Dosage: 0.375 MCG/KG/MIN
     Dates: start: 2015, end: 20160902
  11. RAPAMUNE [Suspect]
     Active Substance: SIROLIMUS
     Indication: PROPHYLAXIS AGAINST TRANSPLANT REJECTION
     Dosage: 5 MG, 1X/DAY
     Route: 048
     Dates: end: 20160902
  12. DIGOXIN. [Concomitant]
     Active Substance: DIGOXIN
     Dosage: 125 UG, 1X/DAY
     Route: 048
     Dates: start: 2009
  13. POTASSIUM CHLORIDE. [Concomitant]
     Active Substance: POTASSIUM CHLORIDE
     Dosage: 20 MEQ, 1X/DAY
     Route: 048
     Dates: start: 2009, end: 20160815

REACTIONS (4)
  - Arthritis [Unknown]
  - Heart rate decreased [Fatal]
  - Cardiac failure [Fatal]
  - Product use issue [Unknown]

NARRATIVE: CASE EVENT DATE: 20160813
